FAERS Safety Report 8807157 (Version 1)
Quarter: 2012Q4

REPORT INFORMATION
  Report Type: 
  Country: US (occurrence: US)
  Receive Date: 20120925
  Receipt Date: 20120925
  Transmission Date: 20130627
  Serious: Yes (Other)
  Sender: FDA-Public Use
  Company Number: US-SHIRE-ALL1-2012-04298

PATIENT
  Sex: Female
  Weight: 49.89 kg

DRUGS (11)
  1. LIALDA [Suspect]
     Indication: COLITIS ULCERATIVE
     Dosage: 2.4 g, 1x/day:qd(two 1.2 g tablets daily)
     Route: 048
     Dates: start: 2011
  2. LIALDA [Suspect]
     Dosage: 4.8 g, 1x/day:qd(four 1.2 g tablets daily)
     Route: 048
  3. LIALDA [Suspect]
     Dosage: 2.4 g, 1x/day:qd(two 1.2 g tablets daily)
     Route: 048
  4. LIALDA [Suspect]
     Dosage: 4.8 g, 1x/day:qd(four 1.2 g tablets daily)
     Route: 048
  5. LIALDA [Suspect]
     Dosage: 2.4 g, 1x/day:qd(two 1.2 g tablets daily)
     Route: 048
  6. TRIAMTERENE AND HYDROCHLOROTHIAZIDE [Concomitant]
     Indication: HYPERTENSION
     Dosage: UNK UNK, 1x/day:qd(37.5m-25mg)
     Route: 048
     Dates: start: 1997
  7. PREDNISONE [Concomitant]
     Indication: COLITIS ULCERATIVE
     Dosage: 5 mg, 1x/day:qd
     Route: 048
     Dates: start: 201005
  8. ALLEGRA [Concomitant]
     Indication: HYPERSENSITIVITY
     Dosage: UNK, As req^d
     Route: 048
  9. CLARITIN                           /00917501/ [Concomitant]
     Indication: HYPERSENSITIVITY
     Dosage: UNK, As req^d
     Route: 048
  10. OTHER ANTIALLERGICS [Concomitant]
     Indication: HYPERSENSITIVITY
     Dosage: UNK, Unknown
     Route: 058
  11. OTHER ANTIALLERGICS [Concomitant]
     Indication: FOOD ALLERGY

REACTIONS (5)
  - Skin cancer [Recovered/Resolved]
  - Haematochezia [Not Recovered/Not Resolved]
  - Nodule [Not Recovered/Not Resolved]
  - Myalgia [Not Recovered/Not Resolved]
  - Colitis ulcerative [Not Recovered/Not Resolved]
